FAERS Safety Report 5192444-8 (Version None)
Quarter: 2006Q4

REPORT INFORMATION
  Report Type: 
  Country: None (occurrence: None)
  Receive Date: 20061220
  Receipt Date: 20061207
  Transmission Date: 20070319
  Serious: Yes (Other)
  Sender: FDA-Public Use
  Company Number: 2006152142

PATIENT
  Age: 35 Year
  Sex: Female

DRUGS (2)
  1. DEPO-PROVERA [Suspect]
     Dosage: (FIRST INJECTION), INTRAMUSCULAR - SEE IMAGE
     Route: 030
     Dates: start: 19970601, end: 19970601
  2. DEPO-PROVERA [Suspect]
     Dosage: (FIRST INJECTION), INTRAMUSCULAR - SEE IMAGE
     Route: 030
     Dates: start: 20050501, end: 20050501

REACTIONS (2)
  - FOOT FRACTURE [None]
  - OSTEOPOROSIS [None]
